FAERS Safety Report 4362462-8 (Version None)
Quarter: 2004Q2

REPORT INFORMATION
  Report Type: 
  Country: None (occurrence: None)
  Receive Date: 20040521
  Receipt Date: 20040510
  Transmission Date: 20050107
  Serious: Yes (Hospitalization)
  Sender: FDA-Public Use
  Company Number: NL-GLAXOSMITHKLINE-B0332451A

PATIENT
  Age: 60 Year
  Sex: Male

DRUGS (5)
  1. ROSIGLITAZONE MALEATE [Suspect]
     Indication: DIABETES MELLITUS NON-INSULIN-DEPENDENT
     Dosage: 4MG PER DAY
     Route: 048
     Dates: start: 20040115, end: 20040423
  2. LIPITOR [Concomitant]
     Dosage: 20MG PER DAY
     Route: 048
     Dates: start: 20010101, end: 20040423
  3. ASPIRIN [Concomitant]
     Dosage: 80MG PER DAY
     Route: 048
     Dates: start: 20000101
  4. LOSEC [Concomitant]
     Dosage: 20MG PER DAY
     Route: 048
     Dates: start: 20000101
  5. LEVOMEPROMAZINE [Concomitant]
     Dosage: 25MG PER DAY
     Route: 048
     Dates: start: 19970101

REACTIONS (3)
  - HEPATIC FUNCTION ABNORMAL [None]
  - INTENTION TREMOR [None]
  - MYOCLONUS [None]
